FAERS Safety Report 8026165-0 (Version None)
Quarter: 2012Q1

REPORT INFORMATION
  Report Type: 
  Country: None (occurrence: None)
  Receive Date: 20120105
  Receipt Date: 20110126
  Transmission Date: 20120608
  Serious: No
  Sender: FDA-Public Use
  Company Number: US-ABBOTT-11P-163-0701196-00

PATIENT
  Sex: Female
  Weight: 70 kg

DRUGS (2)
  1. YAZ [Concomitant]
     Indication: ORAL CONTRACEPTION
     Route: 048
  2. SYNTHROID [Suspect]
     Indication: THYROID CANCER
     Route: 048
     Dates: start: 20101221

REACTIONS (2)
  - DRUG INEFFECTIVE [None]
  - THYROXINE FREE ABNORMAL [None]
